FAERS Safety Report 10099094 (Version 1)
Quarter: 2014Q2

REPORT INFORMATION
  Report Type: Spontaneous
  Country: US (occurrence: US)
  Receive Date: 20140423
  Receipt Date: 20140423
  Transmission Date: 20141212
  Serious: Yes (Other)
  Sender: FDA-Public Use
  Company Number: US-ACTAVIS-2014-07749

PATIENT
  Sex: Female

DRUGS (4)
  1. TAMOXIFEN CITRATE (WATSON LABORATORIES) [Suspect]
     Indication: BREAST CANCER
     Dosage: 20 MG, DAILY
     Route: 048
     Dates: start: 2007
  2. LEVOTHYROXINE [Concomitant]
     Indication: HYPOTHYROIDISM
     Dosage: 25 MCG ,UNK
     Route: 048
  3. MIRTAZAPINE [Concomitant]
     Indication: DEPRESSION
     Dosage: 15 MG, QPM
     Route: 048
  4. OLANZAPINE [Concomitant]
     Indication: DEPRESSION
     Dosage: 5 MG, DAILY
     Route: 048

REACTIONS (1)
  - Major depression [Recovering/Resolving]
